FAERS Safety Report 4876704-3 (Version None)
Quarter: 2005Q4

REPORT INFORMATION
  Report Type: 
  Country: None (occurrence: None)
  Receive Date: 20051206
  Receipt Date: 20050926
  Transmission Date: 20060501
  Serious: No
  Sender: FDA-Public Use
  Company Number: USA041183924

PATIENT
  Age: 82 Year
  Sex: Male

DRUGS (19)
  1. CYMBALTA [Suspect]
     Indication: POLYNEUROPATHY
     Dosage: 60 MG DAY
     Dates: start: 20041101
  2. COUMADIN [Concomitant]
  3. CHLORPHEDRINE [Concomitant]
  4. NITROLINGUAL (GLYCERYL TRINITRATE) [Concomitant]
  5. METOPROLOL [Concomitant]
  6. HYTRIN (TERAZOSINE HYDROCHLORIDE) [Concomitant]
  7. LIPITOR [Concomitant]
  8. FLONASE [Concomitant]
  9. AMBIEN [Concomitant]
  10. GLUCOTROL [Concomitant]
  11. TRIAMCINOLONE [Concomitant]
  12. PERCOCET [Concomitant]
  13. HYDROCORTISONE [Concomitant]
  14. AVANDIA (ROSIGLTAZONE MALEATE) [Concomitant]
  15. OXYMETAZOLINE [Concomitant]
  16. HYDROCHLOROTHIAZIDE [Concomitant]
  17. ESZOPICLONE [Concomitant]
  18. MELATONIN [Concomitant]
  19. PSYLLIUM [Concomitant]

REACTIONS (16)
  - ACTIVITIES OF DAILY LIVING IMPAIRED [None]
  - ANOREXIA [None]
  - CONSTIPATION [None]
  - DISORIENTATION [None]
  - DIZZINESS [None]
  - DRUG INEFFECTIVE [None]
  - DRY MOUTH [None]
  - FALL [None]
  - FATIGUE [None]
  - HALLUCINATION [None]
  - HYPERHIDROSIS [None]
  - HYPERSOMNIA [None]
  - MIDDLE INSOMNIA [None]
  - MOOD SWINGS [None]
  - NAUSEA [None]
  - THINKING ABNORMAL [None]
